FAERS Safety Report 20855758 (Version 1)
Quarter: 2022Q2

REPORT INFORMATION
  Report Type: Spontaneous
  Country: US (occurrence: None)
  Receive Date: 20220520
  Receipt Date: 20220520
  Transmission Date: 20220721
  Serious: No
  Sender: FDA-Public Use
  Company Number: None

PATIENT
  Age: 49 Year
  Sex: Female

DRUGS (1)
  1. SUBOXONE [Suspect]
     Active Substance: BUPRENORPHINE HYDROCHLORIDE\NALOXONE HYDROCHLORIDE
     Dosage: 4MG/1MG BID SUBILINGUAL? ?
     Route: 060
     Dates: start: 202205, end: 202205

REACTIONS (1)
  - Memory impairment [None]

NARRATIVE: CASE EVENT DATE: 20200520
